FAERS Safety Report 18512439 (Version 1)
Quarter: 2020Q4

REPORT INFORMATION
  Report Type: Spontaneous
  Country: US (occurrence: US)
  Receive Date: 20201117
  Receipt Date: 20201117
  Transmission Date: 20210114
  Serious: Yes (Hospitalization)
  Sender: FDA-Public Use
  Company Number: US-CELGENEUS-USA-20201103214

PATIENT
  Age: 70 Year
  Sex: Male

DRUGS (4)
  1. POMALYST [Suspect]
     Active Substance: POMALIDOMIDE
     Dosage: 4 MG- 3 MG
     Route: 048
     Dates: start: 201612
  2. POMALYST [Suspect]
     Active Substance: POMALIDOMIDE
     Indication: PLASMA CELL MYELOMA
     Dosage: 4 MILLIGRAM
     Route: 048
     Dates: start: 201411
  3. POMALYST [Suspect]
     Active Substance: POMALIDOMIDE
     Dosage: 3 MILLIGRAM
     Route: 048
     Dates: start: 201502
  4. POMALYST [Suspect]
     Active Substance: POMALIDOMIDE
     Dosage: 3 MILLIGRAM
     Route: 048
     Dates: start: 201708

REACTIONS (1)
  - Cardiac disorder [Unknown]

NARRATIVE: CASE EVENT DATE: 202010
